FAERS Safety Report 10665771 (Version 2)
Quarter: 2015Q1

REPORT INFORMATION
  Report Type: Spontaneous
  Country: US (occurrence: US)
  Receive Date: 20141219
  Receipt Date: 20150319
  Transmission Date: 20150720
  Serious: No
  Sender: FDA-Public Use
  Company Number: US-SHIONOGI, INC-2014001131

PATIENT
  Age: 84 Year
  Sex: Female

DRUGS (8)
  1. OSPHENA [Suspect]
     Active Substance: OSPEMIFENE
     Indication: VULVOVAGINAL DRYNESS
  2. CLONAZEPAM. [Concomitant]
     Active Substance: CLONAZEPAM
     Indication: ANXIETY
     Dosage: 0.5 MG, PRN
     Route: 065
  3. BONIVA [Concomitant]
     Active Substance: IBANDRONATE SODIUM
     Indication: PRODUCT USED FOR UNKNOWN INDICATION
     Dosage: 150 MG, 1 TIME PER MONTH
     Route: 065
  4. VAGIFEM [Concomitant]
     Active Substance: ESTRADIOL
     Indication: PRODUCT USED FOR UNKNOWN INDICATION
     Dosage: UNK
     Route: 065
     Dates: end: 20141021
  5. GLYBURIDE/METFORMIN [Concomitant]
     Active Substance: GLYBURIDE\METFORMIN
     Indication: PRODUCT USED FOR UNKNOWN INDICATION
     Dosage: 2.5/500 MG, 1 AND A HALF A DAY
     Route: 065
  6. ENALAPRIL [Concomitant]
     Active Substance: ENALAPRIL
     Indication: PRODUCT USED FOR UNKNOWN INDICATION
     Dosage: 10 MG, QD
     Route: 065
  7. OSPHENA [Suspect]
     Active Substance: OSPEMIFENE
     Indication: ATROPHY
     Dosage: 60 MG, QD
     Route: 065
     Dates: start: 20141028, end: 20141107
  8. OSPHENA [Suspect]
     Active Substance: OSPEMIFENE
     Indication: OFF LABEL USE

REACTIONS (5)
  - Urinary tract disorder [Not Recovered/Not Resolved]
  - Vulvovaginal discomfort [Unknown]
  - Off label use [Unknown]
  - Urine abnormality [Unknown]
  - Nitrite urine present [Recovering/Resolving]

NARRATIVE: CASE EVENT DATE: 20141106
